FAERS Safety Report 7816932-8 (Version None)
Quarter: 2011Q4

REPORT INFORMATION
  Report Type: 
  Country: None (occurrence: None)
  Receive Date: 20111017
  Receipt Date: 20111012
  Transmission Date: 20120403
  Serious: Yes (Hospitalization, Other)
  Sender: FDA-Public Use
  Company Number: US-PFIZER INC-2011244125

PATIENT
  Sex: Female

DRUGS (2)
  1. BACTRIM [Concomitant]
     Indication: URINARY TRACT INFECTION
  2. TIKOSYN [Suspect]
     Indication: URINARY TRACT INFECTION
     Dosage: UNK

REACTIONS (4)
  - URINARY TRACT INFECTION [None]
  - CHEST PAIN [None]
  - PNEUMONIA [None]
  - CARDIAC DISORDER [None]
